FAERS Safety Report 6122993-7 (Version None)
Quarter: 2009Q1

REPORT INFORMATION
  Report Type: 
  Country: None (occurrence: None)
  Receive Date: 20090318
  Receipt Date: 20090305
  Transmission Date: 20090719
  Serious: Yes (Hospitalization)
  Sender: FDA-Public Use
  Company Number: US-AMGEN-US337142

PATIENT
  Sex: Male
  Weight: 93 kg

DRUGS (4)
  1. PANITUMUMAB [Suspect]
     Indication: OESOPHAGEAL CARCINOMA
     Route: 042
     Dates: start: 20090217
  2. OXALIPLATIN [Concomitant]
     Dates: start: 20090217
  3. CAPECITABINE [Concomitant]
     Dates: start: 20090217
  4. RADIATION THERAPY [Concomitant]

REACTIONS (6)
  - BODY TEMPERATURE INCREASED [None]
  - CHILLS [None]
  - HYPOTENSION [None]
  - NAUSEA [None]
  - RASH [None]
  - VOMITING [None]
